FAERS Safety Report 9820049 (Version 1)
Quarter: 2014Q1

REPORT INFORMATION
  Report Type: Spontaneous
  Country: US (occurrence: None)
  Receive Date: 20140113
  Receipt Date: 20140113
  Transmission Date: 20141002
  Serious: Yes (Disabling)
  Sender: FDA-Public Use
  Company Number: None

PATIENT
  Age: 67 Year
  Sex: Male
  Weight: 215 kg

DRUGS (1)
  1. LEVOTHYROXINE [Suspect]
     Indication: HYPOTHYROIDISM
     Dosage: 1 TWICE DAILY
     Route: 048
     Dates: start: 20131119, end: 20140111

REACTIONS (4)
  - Product quality issue [None]
  - Disease recurrence [None]
  - Product physical issue [None]
  - Product taste abnormal [None]
